FAERS Safety Report 10028690 (Version 1)
Quarter: 2014Q1

REPORT INFORMATION
  Report Type: Spontaneous
  Country: DE (occurrence: DE)
  Receive Date: 20140321
  Receipt Date: 20140321
  Transmission Date: 20141002
  Serious: Yes (Hospitalization)
  Sender: FDA-Public Use
  Company Number: DE-ALEXION PHARMACEUTICALS INC.-A201400856

PATIENT
  Sex: 0

DRUGS (7)
  1. SOLIRIS 300MG [Suspect]
     Indication: PAROXYSMAL NOCTURNAL HAEMOGLOBINURIA
     Dosage: 600 MG, QW
     Route: 042
     Dates: start: 20131212, end: 20140109
  2. SOLIRIS 300MG [Suspect]
     Dosage: 900 MG, Q2W
     Route: 042
     Dates: start: 20140123
  3. ARCOXIA [Concomitant]
     Indication: BONE PAIN
     Dosage: 90 MG, QD
     Route: 048
     Dates: start: 201312
  4. NOVALGIN                           /06276704/ [Concomitant]
     Indication: PAIN
     Dosage: 1500 MG, QD
     Route: 048
  5. CYCLOSPORINE [Concomitant]
     Indication: APLASTIC ANAEMIA
     Dosage: 10 MG, QD
     Route: 048
  6. CYMBALTA [Concomitant]
     Indication: PAIN
     Dosage: 60 MG, QD
     Route: 048
  7. CYMBALTA [Concomitant]
     Indication: DEPRESSION

REACTIONS (4)
  - Dyspnoea [Not Recovered/Not Resolved]
  - Pyrexia [Not Recovered/Not Resolved]
  - Headache [Unknown]
  - Dizziness [Unknown]
